FAERS Safety Report 18857718 (Version 6)
Quarter: 2025Q4

REPORT INFORMATION
  Report Type: Report from Study
  Country: US (occurrence: None)
  Receive Date: 20210208
  Receipt Date: 20251222
  Transmission Date: 20260118
  Serious: Yes (Hospitalization, Other)
  Sender: CHIESI
  Company Number: US-AMRYT PHARMACEUTICALS DAC-AEGR005001

PATIENT
  Age: 45 Year
  Sex: Female

DRUGS (11)
  1. METRELEPTIN [Suspect]
     Active Substance: METRELEPTIN
     Indication: Familial partial lipodystrophy
     Dosage: 5 MILLIGRAM, QD
     Dates: start: 20200306, end: 20200922
  2. METRELEPTIN [Suspect]
     Active Substance: METRELEPTIN
     Dosage: 7.5 MILLIGRAM, QD
     Dates: start: 20200923, end: 20221114
  3. FENOFIBRATE [Concomitant]
     Active Substance: FENOFIBRATE
     Indication: Hypertriglyceridaemia
     Dosage: 160 MILLIGRAM, QD
     Route: 061
  4. INSULIN GLARGINE [Concomitant]
     Active Substance: INSULIN GLARGINE
     Indication: Diabetes mellitus
     Dosage: 120 DOSAGE FORM, BID
  5. LEVOTHYROXINE [Concomitant]
     Active Substance: LEVOTHYROXINE
     Indication: Hypothyroidism
     Dosage: 300 MICROGRAM, QD
     Route: 061
     Dates: end: 20200604
  6. LEVOTHYROXINE [Concomitant]
     Active Substance: LEVOTHYROXINE
     Dosage: 375 MILLIGRAM, QD
     Route: 061
     Dates: start: 20200605
  7. LEVOTHYROXINE [Concomitant]
     Active Substance: LEVOTHYROXINE
     Dosage: 150 MICROGRAM, BID
     Route: 061
     Dates: start: 20200605
  8. LOSARTAN [Concomitant]
     Active Substance: LOSARTAN
     Indication: Hypertension
     Dosage: 50 MILLIGRAM, QD
     Route: 061
  9. METFORMIN [Concomitant]
     Active Substance: METFORMIN HYDROCHLORIDE
     Indication: Diabetes mellitus
     Dosage: 1000 MILLIGRAM, BID
     Route: 061
  10. ROSUVASTATIN [Concomitant]
     Active Substance: ROSUVASTATIN
     Indication: Hypertriglyceridaemia
     Dosage: 20 MILLIGRAM, QD
     Route: 061
  11. WARFARIN [Concomitant]
     Active Substance: WARFARIN
     Indication: Deep vein thrombosis
     Dosage: 10 MILLIGRAM, QD
     Route: 061

REACTIONS (12)
  - Cerebrovascular accident [Recovered/Resolved]
  - Pneumonia aspiration [Recovered/Resolved]
  - Road traffic accident [Recovered/Resolved]
  - Pancreatitis acute [Recovered/Resolved]
  - Pancreatitis acute [Recovered/Resolved]
  - Hospitalisation [Unknown]
  - Memory impairment [Unknown]
  - COVID-19 [Recovered/Resolved]
  - Vomiting [Recovered/Resolved]
  - Nausea [Recovered/Resolved]
  - Laboratory test abnormal [Unknown]
  - Off label use [Unknown]

NARRATIVE: CASE EVENT DATE: 20200812
